FAERS Safety Report 6715503-4 (Version None)
Quarter: 2010Q2

REPORT INFORMATION
  Report Type: 
  Country: None (occurrence: None)
  Receive Date: 20100507
  Receipt Date: 20100426
  Transmission Date: 20101027
  Serious: Yes (Hospitalization)
  Sender: FDA-Public Use
  Company Number: PHHY2010DE27477

PATIENT
  Sex: Male

DRUGS (7)
  1. RASILEZ [Suspect]
     Indication: HYPERTENSION
     Dosage: 150 MG/D
     Dates: start: 20100201
  2. RAMIPRIL [Concomitant]
     Indication: HYPERTENSION
     Dosage: 2 DF /D
  3. METOPROLOL [Concomitant]
     Indication: HYPERTENSION
     Dosage: 1 DF BID
  4. NITRENDIPIN [Concomitant]
     Indication: HYPERTENSION
     Dosage: 1 DF BID
  5. PENTAERYTHRITOL TETRANITRATE [Concomitant]
     Indication: HYPERTENSION
     Dosage: 1 DF BID
  6. PANTOZOL [Concomitant]
     Indication: HYPERTENSION
     Dosage: 40 MG EVERY THIRD DAY
  7. DIURETICS [Concomitant]
     Indication: HYPERTENSION
     Dosage: UNK

REACTIONS (2)
  - HAEMORRHAGIC DIATHESIS [None]
  - RENAL FAILURE [None]
